FAERS Safety Report 7473287-9 (Version None)
Quarter: 2011Q2

REPORT INFORMATION
  Report Type: 
  Country: None (occurrence: None)
  Receive Date: 20110511
  Receipt Date: 20110420
  Transmission Date: 20111010
  Serious: Yes (Hospitalization, Other)
  Sender: FDA-Public Use
  Company Number: US-ASTRAZENECA-2011SE22654

PATIENT
  Sex: Female
  Weight: 81.6 kg

DRUGS (1)
  1. CRESTOR [Suspect]
     Route: 048
     Dates: start: 20010101

REACTIONS (4)
  - BREAST CANCER [None]
  - MASTECTOMY [None]
  - LYMPHADENECTOMY [None]
  - LUNG NEOPLASM MALIGNANT [None]
